FAERS Safety Report 10432587 (Version 2)
Quarter: 2014Q4

REPORT INFORMATION
  Report Type: Spontaneous
  Country: NL (occurrence: NL)
  Receive Date: 20140905
  Receipt Date: 20141103
  Transmission Date: 20150528
  Serious: Yes (Other)
  Sender: FDA-Public Use
  Company Number: NL-ASTELLAS-2014EU011439

PATIENT
  Age: 50 Year
  Sex: Female

DRUGS (1)
  1. VESICARE [Suspect]
     Active Substance: SOLIFENACIN SUCCINATE
     Indication: URGE INCONTINENCE
     Route: 048

REACTIONS (3)
  - Arrhythmia [Recovered/Resolved]
  - Muscular weakness [Recovered/Resolved]
  - Palpitations [Recovered/Resolved]
